FAERS Safety Report 22530241 (Version 1)
Quarter: 2023Q2

REPORT INFORMATION
  Report Type: Spontaneous
  Country: US (occurrence: US)
  Receive Date: 20230607
  Receipt Date: 20230607
  Transmission Date: 20230721
  Serious: No
  Sender: FDA-Public Use
  Company Number: US-TEVA-2023-US-2888367

PATIENT
  Age: 69 Year
  Sex: Female
  Weight: 113.3 kg

DRUGS (1)
  1. COPAXONE [Suspect]
     Active Substance: GLATIRAMER ACETATE
     Indication: Multiple sclerosis
     Dosage: 17.1429 MILLIGRAM DAILY; 40 MG/ML EVERY 3 DAYS IN A WEEK
     Route: 065

REACTIONS (6)
  - Concussion [Unknown]
  - Nervousness [Unknown]
  - Hiccups [Unknown]
  - Insomnia [Unknown]
  - Hand deformity [Unknown]
  - Inappropriate schedule of product administration [Unknown]

NARRATIVE: CASE EVENT DATE: 20230509
